FAERS Safety Report 8922597 (Version 4)
Quarter: 2013Q4

REPORT INFORMATION
  Report Type: Spontaneous
  Country: US (occurrence: US)
  Receive Date: 20121125
  Receipt Date: 20131018
  Transmission Date: 20140711
  Serious: Yes (Hospitalization, Disabling, Other)
  Sender: FDA-Public Use
  Company Number: US-ASTRAZENECA-2012SE86374

PATIENT
  Age: 38 Year
  Sex: Female
  Weight: 49.9 kg

DRUGS (31)
  1. NEXIUM [Suspect]
     Indication: GASTROOESOPHAGEAL REFLUX DISEASE
     Route: 048
     Dates: start: 1995, end: 2010
  2. NEXIUM [Suspect]
     Indication: GASTROOESOPHAGEAL REFLUX DISEASE
     Dosage: 20 MG AND 30 MG DAY
     Route: 048
     Dates: start: 2000, end: 2003
  3. NEXIUM [Suspect]
     Indication: GASTROOESOPHAGEAL REFLUX DISEASE
     Route: 048
     Dates: start: 200406, end: 201103
  4. NEXIUM [Suspect]
     Indication: GASTROOESOPHAGEAL REFLUX DISEASE
     Route: 048
     Dates: start: 20040625
  5. PRILOSEC [Suspect]
     Route: 048
     Dates: start: 2011
  6. PRILOSEC OTC [Suspect]
     Route: 048
  7. LEXAPRO [Concomitant]
     Dosage: TWO TIMES  DAY
  8. LEXAPRO [Concomitant]
     Dates: start: 20110324
  9. TRAZODONE [Concomitant]
     Dates: start: 20110324
  10. KLONOPIN [Concomitant]
     Dates: start: 20110324
  11. KLONOPIN [Concomitant]
  12. HYDROCODONE [Concomitant]
     Dates: start: 20110324
  13. ACIPHEX [Concomitant]
     Indication: GASTROOESOPHAGEAL REFLUX DISEASE
  14. ACIPHEX [Concomitant]
     Indication: GASTROOESOPHAGEAL REFLUX DISEASE
     Dates: start: 2012
  15. ZANTAC [Concomitant]
     Indication: GASTROOESOPHAGEAL REFLUX DISEASE
     Dates: start: 1997, end: 1998
  16. HYDRODIURIL [Concomitant]
  17. IBUPROFEN [Concomitant]
     Indication: PAIN
  18. PRAVACHOL [Concomitant]
  19. XANAX [Concomitant]
     Indication: PANIC ATTACK
  20. PROMETHAZINE [Concomitant]
  21. METOCLOPRAMIDE [Concomitant]
     Dates: start: 20061003
  22. NAPROXEN [Concomitant]
     Dates: start: 20060927
  23. METHYLPREDNISOLONE [Concomitant]
     Dates: start: 20061024
  24. HYOSCYAMINE [Concomitant]
     Dates: start: 20051006
  25. BUPROPION SR [Concomitant]
     Dates: start: 20070216
  26. TEMAZEPAM [Concomitant]
     Dates: start: 20070507
  27. METRONIDAZOLE [Concomitant]
     Dates: start: 20040711
  28. BIAXIN [Concomitant]
     Dates: start: 20040727
  29. SIMVASTATIN [Concomitant]
     Dates: start: 20090108
  30. INDOMETHACIN [Concomitant]
     Dates: start: 20090610
  31. DOXEPIN [Concomitant]
     Dates: start: 20090613

REACTIONS (19)
  - Mental disorder [Unknown]
  - Gastric disorder [Unknown]
  - Foot fracture [Unknown]
  - Fall [Unknown]
  - Gastric infection [Unknown]
  - Injury [Unknown]
  - Suicide attempt [Unknown]
  - Upper limb fracture [Unknown]
  - Radius fracture [Unknown]
  - Osteoporosis [Unknown]
  - Bone disorder [Unknown]
  - Limb injury [Unknown]
  - Multiple fractures [Unknown]
  - Road traffic accident [Unknown]
  - Arthritis [Unknown]
  - Chronic obstructive pulmonary disease [Unknown]
  - Bipolar II disorder [Unknown]
  - Post-traumatic stress disorder [Unknown]
  - Depression [Unknown]
